FAERS Safety Report 23414728 (Version 1)
Quarter: 2024Q1

REPORT INFORMATION
  Report Type: Spontaneous
  Country: FR (occurrence: FR)
  Receive Date: 20240118
  Receipt Date: 20240118
  Transmission Date: 20240410
  Serious: Yes (Other)
  Sender: FDA-Public Use
  Company Number: FR-AFSSAPS-PB2023001566

PATIENT
  Age: 77 Year
  Sex: Male
  Weight: 68.2 kg

DRUGS (4)
  1. LAMOTRIGINE [Suspect]
     Active Substance: LAMOTRIGINE
     Indication: Bipolar I disorder
     Dosage: 25 MILLIGRAM, EVERY OTHER DAY(25 MG UN JOUR SURDEUX)
     Route: 048
     Dates: start: 20231110, end: 20231123
  2. LAMOTRIGINE [Suspect]
     Active Substance: LAMOTRIGINE
     Dosage: 25 MILLIGRAM, ONCE A DAY
     Route: 048
     Dates: start: 20231124, end: 20231207
  3. LAMOTRIGINE [Suspect]
     Active Substance: LAMOTRIGINE
     Dosage: 50 MILLIGRAM, ONCE A DAY
     Route: 048
     Dates: start: 20231208, end: 20231221
  4. LAMOTRIGINE [Suspect]
     Active Substance: LAMOTRIGINE
     Dosage: 100 MILLIGRAM, ONCE A DAY
     Route: 048
     Dates: start: 20231222

REACTIONS (2)
  - Drug eruption [Not Recovered/Not Resolved]
  - Eyelid oedema [Not Recovered/Not Resolved]

NARRATIVE: CASE EVENT DATE: 20231110
